FAERS Safety Report 9370242 (Version 1)
Quarter: 2013Q2

REPORT INFORMATION
  Report Type: Spontaneous
  Country: US (occurrence: None)
  Receive Date: 20130624
  Receipt Date: 20130624
  Transmission Date: 20140414
  Serious: Yes (Hospitalization)
  Sender: FDA-Public Use
  Company Number: ACO_36842_2013

PATIENT
  Age: 69 Year
  Sex: Female
  Weight: 52.2 kg

DRUGS (12)
  1. AMPYRA (DALFAMPRIDINE) TABLET, 10MG [Suspect]
     Indication: GAIT DISTURBANCE
     Route: 048
     Dates: start: 201009, end: 201010
  2. BACLOFEN (BACLOFEN) [Concomitant]
  3. AVONEX (INTERFERON BETA-1A) [Concomitant]
  4. FOSAMAX (ALENDRONAE SODIUM) [Concomitant]
  5. VITAMINS [Concomitant]
  6. FISH OIL (FISH OIL) [Concomitant]
  7. OXYTROL (OXYBUTYNIN) [Concomitant]
  8. FORTEO (TERIPARATIDE) [Concomitant]
  9. SYNTHROID (LEVOTHYROXINE SODIUM) [Concomitant]
  10. ALLEGRA [Concomitant]
  11. FOLIC ACID  (FOLIC ACID) [Concomitant]
  12. CALCIUM (CALCIUM) [Concomitant]

REACTIONS (3)
  - Hip fracture [None]
  - Fall [None]
  - Limb injury [None]
